FAERS Safety Report 7596071-4 (Version None)
Quarter: 2011Q3

REPORT INFORMATION
  Report Type: 
  Country: None (occurrence: None)
  Receive Date: 20110707
  Receipt Date: 20110701
  Transmission Date: 20111222
  Serious: Yes (Death, Hospitalization)
  Sender: FDA-Public Use
  Company Number: PHHY2011JP58995

PATIENT
  Sex: Male

DRUGS (6)
  1. LOSARTAN POTASSIUM [Concomitant]
     Indication: HYPERTENSION
     Dosage: 100 MG, UNK
     Route: 048
     Dates: start: 20040107, end: 20071029
  2. ISOSORBIDE DINITRATE [Concomitant]
     Dosage: 40 MG, UNK
     Route: 048
     Dates: start: 20070523, end: 20090113
  3. VALSARTAN [Suspect]
     Indication: HYPERTENSION
     Dosage: 160 MG, QD
     Route: 048
     Dates: start: 20071030, end: 20090113
  4. TRICHLORMETHIAZIDE [Concomitant]
     Indication: HYPERTENSION
     Dosage: 2 MG, UNK
     Route: 048
     Dates: start: 20051207
  5. MITIGLINIDE [Concomitant]
     Dosage: 30 MG, UNK
     Dates: start: 20040107, end: 20090113
  6. URSO 250 [Concomitant]
     Dosage: 150 MG, UNK
     Route: 048
     Dates: start: 20040107, end: 20090113

REACTIONS (1)
  - PNEUMONIA ASPIRATION [None]
